FAERS Safety Report 17928006 (Version 1)
Quarter: 2020Q2

REPORT INFORMATION
  Report Type: Spontaneous
  Country: DE (occurrence: DE)
  Receive Date: 20200623
  Receipt Date: 20200623
  Transmission Date: 20200714
  Serious: Yes (Hospitalization)
  Sender: FDA-Public Use
  Company Number: DE-TEVA-2020-DE-1789052

PATIENT
  Age: 68 Year
  Sex: Female

DRUGS (11)
  1. TORASEMID [Concomitant]
     Active Substance: TORSEMIDE
     Dosage: 20 MILLIGRAM DAILY;  1-1-0-0
     Route: 048
  2. PACLITAXEL. [Suspect]
     Active Substance: PACLITAXEL
     Dosage: LAST 12052020
     Route: 065
     Dates: end: 20200512
  3. BISOPROLOL [Concomitant]
     Active Substance: BISOPROLOL
     Dosage: 5 MILLIGRAM DAILY; 1-0-1-0
     Route: 048
  4. MIRTAZAPIN [Concomitant]
     Active Substance: MIRTAZAPINE
     Dosage: 15 MILLIGRAM DAILY; 0-0-1-0,
     Route: 048
  5. METAMIZOL [Concomitant]
     Active Substance: METAMIZOLE SODIUM
     Dosage: 40 GTT DAILY; 500 MG / ML, 40-40-40-40, DROPS
     Route: 048
  6. BUDESONID/FORMOTEROL [Concomitant]
     Active Substance: BUDESONIDE\FORMOTEROL
     Dosage: 2 DOSAGE FORMS DAILY; 160 | 4.5 MICROGRAM, 1-0-1-0, MDI
     Route: 055
  7. PANTOPRAZOL [Concomitant]
     Active Substance: PANTOPRAZOLE SODIUM
     Dosage: 40 MILLIGRAM DAILY; 1-0-0-0,
     Route: 048
  8. TIOTROPIUMBROMID [Concomitant]
     Dosage: 2 DOSAGE FORMS DAILY; 18 MICROGRAM, 2-0-0-0
     Route: 055
  9. NALOXONE W/OXYCODONE [Concomitant]
     Active Substance: NALOXONE HYDROCHLORIDE\OXYCODONE HYDROCHLORIDE
     Dosage: 2 DOSAGE FORMS DAILY; 2.5 | 5 MG, 1-0-1-0,
     Route: 048
  10. LEVOTHYROXIN-NATRIUM [Concomitant]
     Active Substance: LEVOTHYROXINE SODIUM
     Dosage: .15 MILLIGRAM DAILY; 0.15 MG, 1-0-0-0
     Route: 048
  11. CARBOPLATIN. [Suspect]
     Active Substance: CARBOPLATIN
     Dosage: LAST 12052020
     Route: 065
     Dates: end: 20200512

REACTIONS (3)
  - Dyspnoea [Unknown]
  - Neutropenia [Unknown]
  - Chest pain [Unknown]
